FAERS Safety Report 23365876 (Version 1)
Quarter: 2024Q1

REPORT INFORMATION
  Report Type: Report from Study
  Country: US (occurrence: None)
  Receive Date: 20240104
  Receipt Date: 20240104
  Transmission Date: 20240410
  Serious: Yes (Hospitalization)
  Sender: FDA-Public Use
  Company Number: 2023A295228

PATIENT
  Sex: Female
  Weight: 62.1 kg

DRUGS (28)
  1. CALQUENCE [Suspect]
     Active Substance: ACALABRUTINIB
     Indication: Mantle cell lymphoma
     Route: 048
  2. ALLOPURINOL [Concomitant]
     Active Substance: ALLOPURINOL
  3. AMLODIPINE [Concomitant]
     Active Substance: AMLODIPINE BESYLATE
  4. ANCEF [Concomitant]
     Active Substance: CEFAZOLIN SODIUM
  5. ASCORBIC ACID [Concomitant]
     Active Substance: ASCORBIC ACID
  6. ASPIRIN [Concomitant]
     Active Substance: ASPIRIN
  7. ATORVASTATIN [Concomitant]
     Active Substance: ATORVASTATIN
  8. BUPROPION [Concomitant]
     Active Substance: BUPROPION
  9. CARVEDILOL [Concomitant]
     Active Substance: CARVEDILOL
  10. DEXAMETHASONE [Concomitant]
     Active Substance: DEXAMETHASONE
  11. FERROUS SULFATE [Concomitant]
     Active Substance: FERROUS SULFATE
  12. FLONASE [Concomitant]
     Active Substance: FLUTICASONE PROPIONATE
  13. FOLIC ACID [Concomitant]
     Active Substance: FOLIC ACID
  14. GABAPENTIN [Concomitant]
     Active Substance: GABAPENTIN
  15. HEPARIN [Concomitant]
     Active Substance: HEPARIN SODIUM
  16. LIDOCAINE [Concomitant]
     Active Substance: LIDOCAINE
  17. LISINOPRIL [Concomitant]
     Active Substance: LISINOPRIL
  18. LOMOTIL [Concomitant]
     Active Substance: ATROPINE SULFATE\DIPHENOXYLATE HYDROCHLORIDE
  19. LORATADINE [Concomitant]
     Active Substance: LORATADINE
  20. NALOXONE [Concomitant]
     Active Substance: NALOXONE
  21. NORCO [Concomitant]
     Active Substance: ACETAMINOPHEN\HYDROCODONE BITARTRATE
  22. OLANZAPINE [Concomitant]
     Active Substance: OLANZAPINE
  23. PAXIL [Concomitant]
     Active Substance: PAROXETINE HYDROCHLORIDE
  24. PROCHLORPERAZINE [Concomitant]
     Active Substance: PROCHLORPERAZINE
  25. OMEPRAZOLE [Concomitant]
     Active Substance: OMEPRAZOLE
  26. TROSPIUM [Concomitant]
     Active Substance: TROSPIUM
  27. VITAMIN B12 [Concomitant]
     Active Substance: CYANOCOBALAMIN
  28. ZOFRAN [Concomitant]
     Active Substance: ONDANSETRON HYDROCHLORIDE

REACTIONS (1)
  - Hallucination [Unknown]
